FAERS Safety Report 9407161 (Version 1)
Quarter: 2013Q3

REPORT INFORMATION
  Report Type: Spontaneous
  Country: CA (occurrence: CA)
  Receive Date: 20130718
  Receipt Date: 20130718
  Transmission Date: 20140515
  Serious: Yes (Other)
  Sender: FDA-Public Use
  Company Number: CA-BAYER-2013-084730

PATIENT
  Age: 52 Year
  Sex: Female

DRUGS (1)
  1. CIPRO [Suspect]

REACTIONS (1)
  - Retinal detachment [None]
